FAERS Safety Report 16254618 (Version 4)
Quarter: 2019Q3

REPORT INFORMATION
  Report Type: Spontaneous
  Country: IT (occurrence: IT)
  Receive Date: 20190430
  Receipt Date: 20190703
  Transmission Date: 20191004
  Serious: Yes (Other)
  Sender: FDA-Public Use
  Company Number: IT-ACCORD-124970

PATIENT
  Age: 67 Year
  Sex: Male

DRUGS (4)
  1. DOXIFLURIDINE [Suspect]
     Active Substance: DOXIFLURIDINE
     Indication: COLON CANCER
     Dosage: ALSO RECEIVED FROM 25-FEB-2019 TO 20-MAY-2019 THROUGH IV BOLUS
     Route: 042
     Dates: start: 20190225, end: 20190225
  2. FLUOROURACIL. [Suspect]
     Active Substance: FLUOROURACIL
     Indication: COLON CANCER
     Dosage: ROUTE OF ADMINISTRATION: INTRAVENOUS (NOT OTHERWISE SPECIFIED)
     Route: 040
     Dates: start: 20190225, end: 20190225
  3. IRINOTECAN [Suspect]
     Active Substance: IRINOTECAN
     Indication: COLON CANCER
     Dosage: ALSO RECEIVED FROM 25-FEB-2019 TO 20-MAY-2019
     Route: 042
     Dates: start: 20190225, end: 20190225
  4. VECTIBIX [Suspect]
     Active Substance: PANITUMUMAB
     Indication: COLON CANCER
     Dosage: ALSO RECEIVED FROM 25-FEB-2019 TO 20-MAY-2019.
     Route: 042
     Dates: start: 20190225, end: 20190225

REACTIONS (3)
  - Fatigue [Not Recovered/Not Resolved]
  - Epistaxis [Not Recovered/Not Resolved]
  - Dermatitis acneiform [Recovered/Resolved]

NARRATIVE: CASE EVENT DATE: 20190225
